FAERS Safety Report 9155960 (Version 4)
Quarter: 2013Q4

REPORT INFORMATION
  Report Type: Report from Study
  Country: CA (occurrence: CA)
  Receive Date: 20130311
  Receipt Date: 20131003
  Transmission Date: 20140711
  Serious: Yes (Other)
  Sender: FDA-Public Use
  Company Number: CA-CELGENEUS-028-C5013-13030232

PATIENT
  Age: 76 Year
  Sex: Male
  Weight: 80 kg

DRUGS (6)
  1. THALOMID [Suspect]
     Indication: PLASMA CELL MYELOMA
     Dosage: 200 MILLIGRAM
     Route: 048
     Dates: start: 20090722
  2. THALOMID [Suspect]
     Dosage: 200 MILLIGRAM
     Route: 048
     Dates: start: 20100110, end: 20100223
  3. MELPHALAN [Suspect]
     Indication: PLASMA CELL MYELOMA
     Dosage: 4 MILLIGRAM
     Route: 065
     Dates: start: 20090720, end: 20100223
  4. PREDNISONE [Suspect]
     Indication: PLASMA CELL MYELOMA
     Dosage: 155 MILLIGRAM
     Route: 065
     Dates: start: 20090720, end: 20100223
  5. REVLIMID [Suspect]
     Indication: PLASMA CELL MYELOMA
     Dosage: 25MG DAILY (DAY 1-21)
     Route: 048
     Dates: start: 20120320
  6. REVLIMID [Suspect]
     Dosage: 15MG (DAY1-21)
     Route: 048
     Dates: start: 20121203

REACTIONS (3)
  - Squamous cell carcinoma of skin [Recovered/Resolved]
  - Bowen^s disease [Recovered/Resolved]
  - Squamous cell carcinoma of skin [Recovered/Resolved]
